FAERS Safety Report 5268523-3 (Version None)
Quarter: 2007Q1

REPORT INFORMATION
  Report Type: 
  Country: None (occurrence: None)
  Receive Date: 20061213
  Receipt Date: 20040818
  Transmission Date: 20070707
  Serious: Yes (Other)
  Sender: FDA-Public Use
  Company Number: 2004UW17518

PATIENT
  Age: 81 Year
  Sex: Female
  Weight: 43.0917 kg

DRUGS (2)
  1. IRESSA [Suspect]
     Indication: NON-SMALL CELL LUNG CANCER
     Dosage: 250 MG PO
     Route: 048
  2. VITAMIN CAP [Concomitant]

REACTIONS (3)
  - COUGH [None]
  - FATIGUE [None]
  - ORAL MUCOSAL BLISTERING [None]
